FAERS Safety Report 9343214 (Version 1)
Quarter: 2013Q2

REPORT INFORMATION
  Report Type: Report from Study
  Country: US (occurrence: US)
  Receive Date: 20130611
  Receipt Date: 20130611
  Transmission Date: 20140414
  Serious: Yes (Hospitalization, Other)
  Sender: FDA-Public Use
  Company Number: US-ASTRAZENECA-2010SE42830

PATIENT
  Age: 81 Year
  Sex: Female
  Weight: 79.4 kg

DRUGS (27)
  1. NEXIUM [Suspect]
     Indication: GASTROOESOPHAGEAL REFLUX DISEASE
     Dosage: DAILY
     Route: 048
  2. NEXIUM [Suspect]
     Indication: GASTROOESOPHAGEAL REFLUX DISEASE
     Route: 048
     Dates: start: 2008
  3. TOPROL XL [Suspect]
     Indication: CORONARY ARTERIAL STENT INSERTION
     Route: 048
     Dates: end: 201305
  4. CRESTOR [Suspect]
     Indication: BLOOD CHOLESTEROL INCREASED
     Route: 048
  5. CRESTOR [Suspect]
     Indication: BLOOD CHOLESTEROL INCREASED
     Dosage: ONCE DAILY
     Route: 048
  6. RADIATION THERAPY [Suspect]
     Route: 065
  7. ISOSORBIDE [Concomitant]
     Indication: CARDIAC DISORDER
  8. FENTANYL [Concomitant]
     Indication: CANCER PAIN
  9. LYRICA [Concomitant]
     Indication: PAIN
  10. LYRICA [Concomitant]
     Indication: MUSCLE DISORDER
  11. TENAZAPAM [Concomitant]
     Indication: SLEEP DISORDER
  12. TORSEMIDE [Concomitant]
     Indication: DIURETIC THERAPY
     Dosage: 10 OR 20 MG
  13. TORSEMIDE [Concomitant]
     Indication: BLADDER DISORDER
     Dosage: 10 OR 20 MG
  14. ASPIRIN [Concomitant]
  15. ZEDYA [Concomitant]
     Indication: BLOOD CHOLESTEROL INCREASED
  16. LEVOTHYROXINE [Concomitant]
     Indication: THYROID DISORDER
  17. POTASSIUM CHLORIDE [Concomitant]
  18. ZYRTEC [Concomitant]
     Indication: MULTIPLE ALLERGIES
  19. PERCOSET [Concomitant]
     Indication: PAIN
     Dosage: 10/325
  20. AMIODERONE [Concomitant]
     Indication: ATRIAL FIBRILLATION
  21. AMIODERONE [Concomitant]
     Indication: ATRIAL FIBRILLATION
  22. AMIODERONE [Concomitant]
     Indication: ATRIAL FIBRILLATION
  23. SENEKOT [Concomitant]
     Indication: FAECES HARD
  24. MIRILAX [Concomitant]
     Indication: FAECES HARD
  25. MULTIVITAMIN [Concomitant]
  26. B 12 [Concomitant]
  27. COQ10 [Concomitant]

REACTIONS (16)
  - Blood magnesium decreased [Unknown]
  - Vomiting [Unknown]
  - Atrial fibrillation [Unknown]
  - Chest discomfort [Unknown]
  - Hallucination [Unknown]
  - Breast cancer [Unknown]
  - Oesophageal perforation [Unknown]
  - Malignant peritoneal neoplasm [Unknown]
  - Thyroid cancer [Unknown]
  - Staphylococcal infection [Unknown]
  - Blood pressure abnormal [Unknown]
  - Blood electrolytes decreased [Unknown]
  - Blood potassium decreased [Unknown]
  - Myalgia [Unknown]
  - Muscle disorder [Unknown]
  - Intentional drug misuse [Unknown]
